FAERS Safety Report 13098929 (Version 3)
Quarter: 2017Q1

REPORT INFORMATION
  Report Type: Report from Study
  Country: US (occurrence: US)
  Receive Date: 20170109
  Receipt Date: 20170224
  Transmission Date: 20170428
  Serious: Yes (Other)
  Sender: FDA-Public Use
  Company Number: US-AMGEN-USASL2017001526

PATIENT
  Age: 82 Year
  Sex: Female

DRUGS (1)
  1. ENBREL [Suspect]
     Active Substance: ETANERCEPT
     Indication: RHEUMATOID ARTHRITIS
     Dosage: 50 MG, QWK
     Route: 065

REACTIONS (17)
  - Rhinorrhoea [Unknown]
  - Eye pruritus [Unknown]
  - Oxygen saturation decreased [Unknown]
  - Fall [Unknown]
  - Injection site erythema [Unknown]
  - Dizziness [Unknown]
  - Injection site pruritus [Unknown]
  - Respiratory tract congestion [Unknown]
  - Weight increased [Unknown]
  - Pyrexia [Unknown]
  - Injection site bruising [Unknown]
  - Influenza [Unknown]
  - Nasopharyngitis [Unknown]
  - Pneumonia [Unknown]
  - Peripheral swelling [Unknown]
  - Injection site mass [Unknown]
  - Cardiac failure congestive [Unknown]

NARRATIVE: CASE EVENT DATE: 201701
